FAERS Safety Report 24327287 (Version 2)
Quarter: 2024Q3

REPORT INFORMATION
  Report Type: Spontaneous
  Country: JP (occurrence: JP)
  Receive Date: 20240917
  Receipt Date: 20240927
  Transmission Date: 20241017
  Serious: Yes (Death)
  Sender: TEVA
  Company Number: JP-TEVA-VS-3242183

PATIENT
  Age: 61 Year
  Sex: Female

DRUGS (3)
  1. CLOPIDOGREL [Suspect]
     Active Substance: CLOPIDOGREL BISULFATE
     Indication: Peripheral arterial occlusive disease
     Route: 065
  2. ASPIRIN [Suspect]
     Active Substance: ASPIRIN
     Indication: Peripheral arterial occlusive disease
     Route: 065
  3. WARFARIN [Suspect]
     Active Substance: WARFARIN
     Indication: Thrombosis prophylaxis
     Route: 065

REACTIONS (1)
  - Cerebral haemorrhage [Fatal]
